FAERS Safety Report 5794052-4 (Version None)
Quarter: 2008Q2

REPORT INFORMATION
  Report Type: 
  Country: None (occurrence: None)
  Receive Date: 20080627
  Receipt Date: 20080617
  Transmission Date: 20081010
  Serious: Yes (Hospitalization)
  Sender: FDA-Public Use
  Company Number: SE-PFIZER INC-2008042870

PATIENT
  Sex: Female

DRUGS (5)
  1. SUTENT [Suspect]
     Indication: RENAL CANCER METASTATIC
     Route: 048
     Dates: start: 20080317, end: 20080503
  2. CILOXAN [Concomitant]
  3. INSULIN DETEMIR [Concomitant]
  4. GEAVIR [Concomitant]
  5. NOVORAPID [Concomitant]

REACTIONS (2)
  - CORNEAL EROSION [None]
  - KERATITIS [None]
